FAERS Safety Report 8112260 (Version 2)
Quarter: 2012Q4

REPORT INFORMATION
  Report Type: 
  Country: US (occurrence: US)
  Receive Date: 20110830
  Receipt Date: 20121125
  Transmission Date: 20130627
  Serious: Yes (Other)
  Sender: FDA-Public Use
  Company Number: US-BAYER-2011-026490

PATIENT
  Sex: Female

DRUGS (3)
  1. MIRENA [Suspect]
     Indication: CONTRACEPTION
     Dosage: 20 ?g, CONT
     Route: 015
     Dates: start: 200804, end: 20101228
  2. MAGNESIUM CITRATE [Concomitant]
  3. FLEET ENEMA [Concomitant]

REACTIONS (22)
  - Device dislocation [None]
  - Abdominal pain [None]
  - Procedural pain [None]
  - Feeling hot [None]
  - Hyperhidrosis [None]
  - Dizziness [None]
  - Post procedural haemorrhage [None]
  - Polymenorrhoea [None]
  - Nausea [Recovered/Resolved]
  - Vision blurred [None]
  - Mood altered [Recovered/Resolved]
  - Depression [Recovered/Resolved]
  - Weight loss poor [None]
  - Abdominal distension [Recovered/Resolved]
  - Alopecia [None]
  - Fatigue [Recovered/Resolved]
  - Abortion spontaneous [None]
  - Menorrhagia [None]
  - Abdominal pain upper [None]
  - Dysmenorrhoea [None]
  - Weight increased [None]
  - Asthenia [None]
